FAERS Safety Report 6425367-4 (Version None)
Quarter: 2009Q4

REPORT INFORMATION
  Report Type: 
  Country: None (occurrence: None)
  Receive Date: 20091103
  Receipt Date: 20091023
  Transmission Date: 20100525
  Serious: Yes (Hospitalization)
  Sender: FDA-Public Use
  Company Number: B0593517A

PATIENT
  Sex: Male

DRUGS (3)
  1. ZANTAC [Suspect]
     Indication: DRUG USE FOR UNKNOWN INDICATION
     Dosage: 75MG PER DAY
     Route: 048
     Dates: start: 20090906, end: 20090906
  2. PELEX [Concomitant]
     Indication: NASOPHARYNGITIS
     Dosage: 1G THREE TIMES PER DAY
     Route: 048
     Dates: start: 20090906, end: 20090908
  3. KLARICID [Concomitant]
     Indication: NASOPHARYNGITIS
     Route: 048
     Dates: start: 20090906, end: 20090906

REACTIONS (1)
  - LIVER DISORDER [None]
